FAERS Safety Report 19270665 (Version 1)
Quarter: 2021Q2

REPORT INFORMATION
  Report Type: Spontaneous
  Country: FR (occurrence: FR)
  Receive Date: 20210518
  Receipt Date: 20210518
  Transmission Date: 20210717
  Serious: Yes (Hospitalization, Other)
  Sender: FDA-Public Use
  Company Number: FR-AAVISPHARMA-2021AP000006

PATIENT

DRUGS (1)
  1. AMPHETAMINE SULFATE. [Suspect]
     Active Substance: AMPHETAMINE SULFATE
     Indication: STRESS CARDIOMYOPATHY

REACTIONS (3)
  - Left ventricular dysfunction [Recovered/Resolved]
  - Cardiogenic shock [Recovered/Resolved]
  - Stress cardiomyopathy [Recovered/Resolved]
